FAERS Safety Report 18293075 (Version 1)
Quarter: 2020Q3

REPORT INFORMATION
  Report Type: Spontaneous
  Country: GB (occurrence: GB)
  Receive Date: 20200921
  Receipt Date: 20200921
  Transmission Date: 20201103
  Serious: Yes (Death)
  Sender: FDA-Public Use
  Company Number: GB-UCBSA-2020036377

PATIENT

DRUGS (5)
  1. ADCAL D3 [Concomitant]
     Active Substance: CALCIUM CARBONATE\CHOLECALCIFEROL
     Indication: PRODUCT USED FOR UNKNOWN INDICATION
     Dosage: UNK
  2. ACETYLSALICYLIC ACID [Concomitant]
     Active Substance: ASPIRIN
     Indication: PRODUCT USED FOR UNKNOWN INDICATION
     Dosage: 75 MG
  3. LAMOTRIGINE. [Suspect]
     Active Substance: LAMOTRIGINE
     Indication: GENERALISED TONIC-CLONIC SEIZURE
     Dosage: 200 MG
     Route: 064
  4. KEPPRA [Suspect]
     Active Substance: LEVETIRACETAM
     Indication: GENERALISED TONIC-CLONIC SEIZURE
     Dosage: 4 GRAM DAILY
     Route: 064
  5. PERAMPANEL [Suspect]
     Active Substance: PERAMPANEL
     Indication: GENERALISED TONIC-CLONIC SEIZURE
     Dosage: 10 MG DAILY
     Route: 064

REACTIONS (3)
  - Maternal exposure during pregnancy [Unknown]
  - Congenital diaphragmatic hernia [Fatal]
  - Pulmonary hypoplasia [Fatal]

NARRATIVE: CASE EVENT DATE: 20190612
